FAERS Safety Report 6481711-3 (Version None)
Quarter: 2009Q4

REPORT INFORMATION
  Report Type: 
  Country: None (occurrence: None)
  Receive Date: 20091208
  Receipt Date: 20090321
  Transmission Date: 20100525
  Serious: No
  Sender: FDA-Public Use
  Company Number: US-AMGEN-KDL339657

PATIENT
  Sex: Female

DRUGS (2)
  1. ENBREL [Suspect]
     Indication: RHEUMATOID ARTHRITIS
     Route: 058
     Dates: start: 20090305
  2. METHOTREXATE [Concomitant]
     Route: 058
     Dates: start: 20090113

REACTIONS (6)
  - DYSPNOEA EXERTIONAL [None]
  - EYE INFLAMMATION [None]
  - EYELID OEDEMA [None]
  - FATIGUE [None]
  - MOBILITY DECREASED [None]
  - SOMNOLENCE [None]
